FAERS Safety Report 8569490-7 (Version None)
Quarter: 2012Q3

REPORT INFORMATION
  Report Type: 
  Country: None (occurrence: None)
  Receive Date: 20120803
  Receipt Date: 20120301
  Transmission Date: 20120928
  Serious: No
  Sender: FDA-Public Use
  Company Number: US-ABBOTT-12P-163-0910770-00

PATIENT
  Sex: Male
  Weight: 92.616 kg

DRUGS (12)
  1. ASPIRIN [Concomitant]
     Indication: CARDIAC DISORDER
  2. TRILIPIX [Concomitant]
     Indication: BLOOD CHOLESTEROL INCREASED
  3. ASPIRIN [Concomitant]
     Indication: PROPHYLAXIS
  4. METOPROLOL TARTRATE [Concomitant]
     Indication: HYPERTENSION
  5. LIPITOR [Concomitant]
     Indication: BLOOD CHOLESTEROL INCREASED
  6. LOVAZA [Concomitant]
     Indication: BLOOD CHOLESTEROL INCREASED
  7. OMEPRAZOLE [Concomitant]
     Indication: GASTROOESOPHAGEAL REFLUX DISEASE
  8. MULTI-VITAMIN [Concomitant]
     Indication: VITAMIN SUPPLEMENTATION
  9. LEXAPRO [Concomitant]
     Indication: DEPRESSION
  10. NIASPAN [Suspect]
     Indication: BLOOD TRIGLYCERIDES INCREASED
     Dates: start: 20110901
  11. METFORMIN HYDROCHLORIDE [Concomitant]
     Indication: DIABETES MELLITUS
  12. LOTREL [Concomitant]
     Indication: HYPERTENSION

REACTIONS (3)
  - PARAESTHESIA [None]
  - FLUSHING [None]
  - MIDDLE INSOMNIA [None]
